FAERS Safety Report 14413931 (Version 3)
Quarter: 2018Q1

REPORT INFORMATION
  Report Type: Spontaneous
  Country: KR (occurrence: KR)
  Receive Date: 20180119
  Receipt Date: 20180316
  Transmission Date: 20180509
  Serious: Yes (Death, Other)
  Sender: FDA-Public Use
  Company Number: KR-BRISTOL-MYERS SQUIBB COMPANY-BMS-2018-004612

PATIENT
  Age: 45 Year
  Sex: Male

DRUGS (1)
  1. OPDIVO [Suspect]
     Active Substance: NIVOLUMAB
     Indication: HEPATOCELLULAR CARCINOMA
     Dosage: 100 MG, QD
     Route: 042
     Dates: start: 20171115, end: 20171130

REACTIONS (6)
  - Malignant neoplasm progression [Unknown]
  - Hepatic failure [Fatal]
  - Hepatitis B reactivation [Fatal]
  - Hepatic encephalopathy [Recovered/Resolved with Sequelae]
  - Adrenal insufficiency [Recovered/Resolved]
  - Hepatorenal syndrome [Recovered/Resolved]

NARRATIVE: CASE EVENT DATE: 20171207
